FAERS Safety Report 8987420 (Version 1)
Quarter: 2012Q4

REPORT INFORMATION
  Report Type: 
  Country: US (occurrence: US)
  Receive Date: 20121227
  Receipt Date: 20121227
  Transmission Date: 20130627
  Serious: No
  Sender: FDA-Public Use
  Company Number: US-PFIZER INC-2012330087

PATIENT
  Sex: Male

DRUGS (2)
  1. LYRICA [Suspect]
     Dosage: 50 mg, 1x/day at bedtime
  2. LISINOPRIL [Concomitant]
     Dosage: UNK

REACTIONS (5)
  - Oedema peripheral [Unknown]
  - Gait disturbance [Unknown]
  - Dizziness [Unknown]
  - Muscular weakness [Unknown]
  - Therapeutic response unexpected [Unknown]
